FAERS Safety Report 11769194 (Version 1)
Quarter: 2015Q4

REPORT INFORMATION
  Report Type: Spontaneous
  Country: CH (occurrence: CH)
  Receive Date: 20151123
  Receipt Date: 20151123
  Transmission Date: 20160304
  Serious: Yes (Hospitalization)
  Sender: FDA-Public Use
  Company Number: CH-PERRIGO-15CH011787

PATIENT
  Age: 65 Year
  Sex: Female

DRUGS (3)
  1. GOOD NEIGHBOR PHARMACY ANTI DIARRHEAL [Suspect]
     Active Substance: LOPERAMIDE HYDROCHLORIDE
     Indication: PRODUCT USED FOR UNKNOWN INDICATION
  2. GOOD NEIGHBOR PHARMACY ANTI DIARRHEAL [Suspect]
     Active Substance: LOPERAMIDE HYDROCHLORIDE
     Indication: DIARRHOEA
     Dosage: 6 MG, QD
     Route: 048
  3. GOOD NEIGHBOR PHARMACY ANTI DIARRHEAL [Suspect]
     Active Substance: LOPERAMIDE HYDROCHLORIDE
     Indication: ABDOMINAL PAIN
     Dosage: UNK
     Route: 048

REACTIONS (1)
  - Pancreatitis acute [Recovered/Resolved]
